FAERS Safety Report 24909046 (Version 1)
Quarter: 2025Q1

REPORT INFORMATION
  Report Type: Spontaneous
  Country: CN (occurrence: CN)
  Receive Date: 20250131
  Receipt Date: 20250131
  Transmission Date: 20250409
  Serious: Yes (Other)
  Sender: ABBVIE
  Company Number: CN-MLMSERVICE-20250120-PI366039-00270-1

PATIENT
  Age: 61 Year
  Sex: Female

DRUGS (8)
  1. PREDNISOLONE ACETATE [Suspect]
     Active Substance: PREDNISOLONE ACETATE
     Indication: Ulcerative keratitis
     Route: 047
     Dates: start: 2023
  2. PREDNISOLONE ACETATE [Suspect]
     Active Substance: PREDNISOLONE ACETATE
     Indication: Conjunctivitis fungal
  3. TACROLIMUS [Suspect]
     Active Substance: TACROLIMUS
     Indication: Ulcerative keratitis
     Route: 065
     Dates: start: 2023
  4. GATIFLOXACIN [Concomitant]
     Active Substance: GATIFLOXACIN
     Indication: Evidence based treatment
     Dates: start: 2023
  5. VORICONAZOLE [Concomitant]
     Active Substance: VORICONAZOLE
     Indication: Conjunctivitis fungal
     Dates: start: 2023
  6. NATAMYCIN [Concomitant]
     Active Substance: NATAMYCIN
     Indication: Conjunctivitis fungal
  7. DICLOFENAC [Concomitant]
     Active Substance: DICLOFENAC
     Indication: Conjunctivitis fungal
  8. ITRACONAZOLE [Concomitant]
     Active Substance: ITRACONAZOLE
     Indication: Ulcerative keratitis
     Route: 048

REACTIONS (2)
  - Sporotrichosis [Recovering/Resolving]
  - Eye infection fungal [Recovering/Resolving]

NARRATIVE: CASE EVENT DATE: 20230101
